FAERS Safety Report 4431684-X (Version None)
Quarter: 2004Q3

REPORT INFORMATION
  Report Type: 
  Country: None (occurrence: None)
  Receive Date: 20040825
  Receipt Date: 20040820
  Transmission Date: 20050211
  Serious: Yes (Hospitalization)
  Sender: FDA-Public Use
  Company Number: CH-MERCK-0408CHE00025

PATIENT
  Age: 70 Year
  Sex: Female

DRUGS (4)
  1. MODURETIC 5-50 [Suspect]
     Route: 048
     Dates: end: 20040405
  2. ASPIRIN [Concomitant]
     Route: 048
  3. TENORMIN [Concomitant]
     Route: 048
  4. POTASSIUM CHLORIDE [Concomitant]
     Route: 048

REACTIONS (2)
  - EPILEPSY [None]
  - HYPONATRAEMIA [None]
